FAERS Safety Report 8842306 (Version 3)
Quarter: 2015Q1

REPORT INFORMATION
  Report Type: Spontaneous
  Country: US (occurrence: US)
  Receive Date: 20121016
  Receipt Date: 20150324
  Transmission Date: 20150721
  Serious: Yes (Hospitalization, Disabling, Other)
  Sender: FDA-Public Use
  Company Number: US-009507513-1210USA003170

PATIENT
  Sex: Female
  Weight: 62.59 kg

DRUGS (2)
  1. FOSAMAX [Suspect]
     Active Substance: ALENDRONATE SODIUM
     Indication: OSTEOPENIA
     Dosage: 70 MG, QW
     Route: 048
     Dates: start: 200211, end: 200704
  2. BONIVA [Concomitant]
     Active Substance: IBANDRONATE SODIUM
     Indication: OSTEOPENIA
     Dosage: 150 MG, UNK
     Route: 048
     Dates: start: 200704, end: 201008

REACTIONS (20)
  - Graft complication [Unknown]
  - Gingival graft [Unknown]
  - Bone graft [Unknown]
  - Fracture nonunion [Recovered/Resolved]
  - Anaemia postoperative [Unknown]
  - Internal fixation of fracture [Unknown]
  - Fibrocystic breast disease [Unknown]
  - Bone graft [Unknown]
  - Surgery [Unknown]
  - Haemoglobin decreased [Unknown]
  - Femur fracture [Unknown]
  - Abdominal hernia [Unknown]
  - Medical device removal [Unknown]
  - Hernia repair [Unknown]
  - Femur fracture [Recovered/Resolved]
  - Medical device removal [Unknown]
  - Medical device change [Unknown]
  - Intramedullary rod insertion [Unknown]
  - Medical device pain [Unknown]
  - Post procedural haemorrhage [Unknown]

NARRATIVE: CASE EVENT DATE: 2003
